FAERS Safety Report 8025690-6 (Version None)
Quarter: 2012Q1

REPORT INFORMATION
  Report Type: 
  Country: None (occurrence: None)
  Receive Date: 20120105
  Receipt Date: 20111227
  Transmission Date: 20120608
  Serious: Yes (Hospitalization)
  Sender: FDA-Public Use
  Company Number: DE-US-EMD SERONO, INC.-7089552

PATIENT
  Sex: Female

DRUGS (4)
  1. MAGNESIUM GEHE BALANCE EFFERVESCENT TABLETS [Concomitant]
     Indication: PRODUCT USED FOR UNKNOWN INDICATION
  2. REBIF [Suspect]
     Indication: MULTIPLE SCLEROSIS
     Route: 058
     Dates: start: 20110920, end: 20111110
  3. BISOPROLOL [Concomitant]
     Indication: PRODUCT USED FOR UNKNOWN INDICATION
  4. PANTOPRAZOLE SODIUM [Concomitant]
     Indication: PRODUCT USED FOR UNKNOWN INDICATION
     Dosage: ENTERIC-COATED TABS

REACTIONS (6)
  - OPTIC NEURITIS [None]
  - TACHYCARDIA [None]
  - SUPRAVENTRICULAR TACHYCARDIA [None]
  - TREMOR [None]
  - HYPERTENSION [None]
  - HYPERHIDROSIS [None]
